FAERS Safety Report 10472812 (Version 3)
Quarter: 2014Q4

REPORT INFORMATION
  Report Type: Spontaneous
  Country: IT (occurrence: IT)
  Receive Date: 20140924
  Receipt Date: 20141117
  Transmission Date: 20150528
  Serious: Yes (Death)
  Sender: FDA-Public Use
  Company Number: IT-JNJFOC-20140913368

PATIENT
  Age: 41 Year
  Sex: Male
  Weight: 139 kg

DRUGS (3)
  1. WELLBUTRIN [Concomitant]
     Active Substance: BUPROPION HYDROCHLORIDE
     Indication: DEPRESSION
     Route: 048
     Dates: start: 20131220, end: 20140912
  2. XEPLION [Suspect]
     Active Substance: PALIPERIDONE PALMITATE
     Indication: SCHIZOPHRENIA
     Route: 030
     Dates: start: 20121128, end: 20140904
  3. DEPAKENE [Concomitant]
     Active Substance: VALPROIC ACID
     Indication: BIPOLAR DISORDER
     Dosage: 2 MG
     Route: 048
     Dates: start: 20111223, end: 20140912

REACTIONS (2)
  - Sinus tachycardia [Unknown]
  - Sudden death [Fatal]

NARRATIVE: CASE EVENT DATE: 20130415
